FAERS Safety Report 7728367-7 (Version None)
Quarter: 2011Q3

REPORT INFORMATION
  Report Type: 
  Country: None (occurrence: None)
  Receive Date: 20110905
  Receipt Date: 20110901
  Transmission Date: 20111222
  Serious: Yes (Other)
  Sender: FDA-Public Use
  Company Number: PHHY2010US49504

PATIENT
  Sex: Male

DRUGS (1)
  1. EXJADE [Suspect]
     Dosage: 2000 MG, QD
     Route: 048

REACTIONS (6)
  - VOMITING [None]
  - NAUSEA [None]
  - CATARACT [None]
  - DEHYDRATION [None]
  - RASH MACULO-PAPULAR [None]
  - DIARRHOEA [None]
